FAERS Safety Report 4439132-0 (Version None)
Quarter: 2004Q3

REPORT INFORMATION
  Report Type: 
  Country: None (occurrence: None)
  Receive Date: 20040831
  Receipt Date: 20040816
  Transmission Date: 20050211
  Serious: Yes (Death)
  Sender: FDA-Public Use
  Company Number: 002426

PATIENT
  Age: 77 Year
  Sex: Female

DRUGS (4)
  1. MEDROXYPROGESTERONE ACETATE [Suspect]
     Dates: start: 19890101, end: 19960101
  2. PREMPRO [Suspect]
     Dates: start: 19960101, end: 20000101
  3. PREMARIN [Suspect]
     Dates: start: 19890101, end: 19960101
  4. PROVERA [Suspect]
     Dates: start: 19890101, end: 19960101

REACTIONS (1)
  - OVARIAN CANCER [None]
